FAERS Safety Report 10038031 (Version 1)
Quarter: 2014Q1

REPORT INFORMATION
  Report Type: Spontaneous
  Country: US (occurrence: None)
  Receive Date: 20140325
  Receipt Date: 20140325
  Transmission Date: 20141002
  Serious: Yes (Other)
  Sender: FDA-Public Use
  Company Number: None

PATIENT
  Age: 58 Year
  Sex: Female

DRUGS (1)
  1. SOVALDI [Suspect]
     Indication: CHRONIC HEPATITIS C
     Route: 048
     Dates: start: 20140130

REACTIONS (5)
  - Arthralgia [None]
  - Multi-organ disorder [None]
  - Pain [None]
  - Insomnia [None]
  - Fatigue [None]
